FAERS Safety Report 25523693 (Version 1)
Quarter: 2025Q3

REPORT INFORMATION
  Report Type: Spontaneous
  Country: US (occurrence: None)
  Receive Date: 20250703
  Receipt Date: 20250703
  Transmission Date: 20251021
  Serious: Yes (Life-Threatening, Disabling, Other)
  Sender: FDA-CTU
  Company Number: None

PATIENT
  Sex: Female

DRUGS (2)
  1. COMPAZINE [Suspect]
     Active Substance: PROCHLORPERAZINE MALEATE
     Indication: Migraine
     Dates: start: 20250514, end: 20250514
  2. BENADRYL [Suspect]
     Active Substance: DIPHENHYDRAMINE HYDROCHLORIDE

REACTIONS (9)
  - Agitation [None]
  - Restlessness [None]
  - Suicidal ideation [None]
  - Lethargy [None]
  - Insomnia [None]
  - Sleep terror [None]
  - Sedation [None]
  - Symptom masked [None]
  - Akathisia [None]

NARRATIVE: CASE EVENT DATE: 20250514
